FAERS Safety Report 26198478 (Version 1)
Quarter: 2025Q4

REPORT INFORMATION
  Report Type: Spontaneous
  Country: US (occurrence: US)
  Receive Date: 20251224
  Receipt Date: 20251224
  Transmission Date: 20260117
  Serious: Yes (Other)
  Sender: ELI LILLY AND COMPANY
  Company Number: US-ELI_LILLY_AND_COMPANY-US202512029811

PATIENT
  Age: 30 Year
  Sex: Female

DRUGS (1)
  1. HUMALOG [Suspect]
     Active Substance: INSULIN LISPRO
     Indication: Product used for unknown indication
     Dosage: 20 U, UNKNOWN
     Route: 065

REACTIONS (4)
  - Nausea [Recovering/Resolving]
  - Pollakiuria [Recovering/Resolving]
  - Thirst [Recovering/Resolving]
  - Blood glucose increased [Recovering/Resolving]
